FAERS Safety Report 25468491 (Version 1)
Quarter: 2025Q2

REPORT INFORMATION
  Report Type: Spontaneous
  Country: US (occurrence: US)
  Receive Date: 20250623
  Receipt Date: 20250623
  Transmission Date: 20250716
  Serious: No
  Sender: MILLICENT HOLDINGS
  Company Number: US-Millicent Holdings Ltd.-MILL20250256

PATIENT
  Sex: Female

DRUGS (2)
  1. INTRAROSA [Suspect]
     Active Substance: PRASTERONE
     Indication: Menopausal symptoms
     Route: 067
     Dates: start: 20250612
  2. INTRAROSA [Suspect]
     Active Substance: PRASTERONE
     Indication: Hormone replacement therapy
     Route: 067

REACTIONS (2)
  - Off label use [Unknown]
  - Application site discharge [Unknown]
